FAERS Safety Report 4277944-7 (Version None)
Quarter: 2004Q1

REPORT INFORMATION
  Report Type: 
  Country: None (occurrence: None)
  Receive Date: 20040120
  Receipt Date: 20040112
  Transmission Date: 20041129
  Serious: Yes (Other)
  Sender: FDA-Public Use
  Company Number: US-JNJFOC-20040102277

PATIENT
  Age: 59 Year
  Sex: Female
  Weight: 67.1324 kg

DRUGS (5)
  1. REMICADE [Suspect]
     Indication: RHEUMATOID ARTHRITIS
     Dosage: INTRAVENOUS
     Route: 042
     Dates: start: 20030327
  2. PREMARIN [Concomitant]
  3. METHOTREXATE [Concomitant]
  4. PREDNISONE [Concomitant]
  5. CELEBREX [Concomitant]

REACTIONS (2)
  - LUPUS-LIKE SYNDROME [None]
  - OEDEMA PERIPHERAL [None]
